FAERS Safety Report 11772022 (Version 1)
Quarter: 2015Q4

REPORT INFORMATION
  Report Type: Report from Study
  Country: GR (occurrence: GR)
  Receive Date: 20151124
  Receipt Date: 20151124
  Transmission Date: 20160304
  Serious: Yes (Death, Other)
  Sender: FDA-Public Use
  Company Number: PHHY2015GR152535

PATIENT
  Age: 53 Year
  Sex: Female

DRUGS (2)
  1. SORAFENIB [Concomitant]
     Active Substance: SORAFENIB
     Indication: PRODUCT USED FOR UNKNOWN INDICATION
     Route: 065
  2. AFINITOR [Suspect]
     Active Substance: EVEROLIMUS
     Indication: RENAL CANCER METASTATIC
     Dosage: 10 MG, UNK
     Route: 065

REACTIONS (6)
  - Death [Fatal]
  - Metastases to adrenals [Unknown]
  - General physical health deterioration [Unknown]
  - Stomatitis [Unknown]
  - Lung disorder [Unknown]
  - Hypertension [Unknown]
